FAERS Safety Report 24331063 (Version 1)
Quarter: 2024Q3

REPORT INFORMATION
  Report Type: Spontaneous
  Country: BR (occurrence: BR)
  Receive Date: 20240918
  Receipt Date: 20240918
  Transmission Date: 20241017
  Serious: Yes (Other)
  Sender: TAKEDA
  Company Number: BR-TAKEDA-2024TUS092212

PATIENT
  Sex: Female
  Weight: 66.6 kg

DRUGS (7)
  1. MESALAMINE [Suspect]
     Active Substance: MESALAMINE
     Indication: Colitis
     Dosage: UNK
     Route: 065
  2. MESALAMINE [Suspect]
     Active Substance: MESALAMINE
     Indication: Colitis
     Dosage: UNK
     Route: 065
  3. ENALAPRIL [Concomitant]
     Active Substance: ENALAPRIL
     Dosage: 20 MILLIGRAM
  4. CIPROFIBRATE [Concomitant]
     Active Substance: CIPROFIBRATE
     Dosage: 100 MILLIGRAM
  5. ATORVASTATIN [Concomitant]
     Active Substance: ATORVASTATIN
     Dosage: 10 MILLIGRAM
  6. SERTRALINE [Concomitant]
     Active Substance: SERTRALINE HYDROCHLORIDE
     Dosage: 100 MILLIGRAM
  7. CLONAZEPAM [Concomitant]
     Active Substance: CLONAZEPAM
     Dosage: 2 MILLIGRAM

REACTIONS (11)
  - Haematochezia [Unknown]
  - Drug ineffective [Unknown]
  - Product residue present [Unknown]
  - Hepatic steatosis [Unknown]
  - Spinal disorder [Unknown]
  - Arthritis [Unknown]
  - Osteoarthritis [Unknown]
  - Renal cyst [Unknown]
  - Arteriosclerosis [Unknown]
  - Headache [Unknown]
  - Back pain [Unknown]
